FAERS Safety Report 7673775-6 (Version None)
Quarter: 2011Q3

REPORT INFORMATION
  Report Type: 
  Country: None (occurrence: None)
  Receive Date: 20110810
  Receipt Date: 20110802
  Transmission Date: 20111222
  Serious: Yes (Other)
  Sender: FDA-Public Use
  Company Number: US-ASTELLAS-2011US004609

PATIENT
  Age: 30 Year
  Sex: Male
  Weight: 79 kg

DRUGS (8)
  1. TACROLIMUS [Suspect]
     Dosage: 2 MG, BID
     Route: 065
     Dates: start: 20100803
  2. PREDNISONE [Suspect]
     Dosage: 10 MG, UID/QD
     Route: 048
     Dates: start: 20100514, end: 20100617
  3. TACROLIMUS [Suspect]
     Indication: RENAL TRANSPLANT
     Dosage: UNK
     Route: 048
     Dates: start: 20090616, end: 20091230
  4. SIROLIMUS [Suspect]
     Indication: RENAL TRANSPLANT
     Dosage: 2 MG, UID/QD
     Route: 048
     Dates: start: 20091219, end: 20100513
  5. MYCOPHENOLATE SODIUM [Suspect]
     Indication: RENAL TRANSPLANT
     Dosage: 720 MG, BID
     Route: 048
     Dates: start: 20090616
  6. TACROLIMUS [Suspect]
     Dosage: 5 MG, BID
     Route: 065
     Dates: start: 20100514
  7. PREDNISONE [Suspect]
     Indication: RENAL TRANSPLANT
     Dosage: 7.5 MG, UID/QD
     Route: 048
     Dates: start: 20100206, end: 20100513
  8. PREDNISONE [Suspect]
     Dosage: 7.5 MG, UID/QD
     Route: 048
     Dates: start: 20100618

REACTIONS (4)
  - KIDNEY TRANSPLANT REJECTION [None]
  - KIDNEY FIBROSIS [None]
  - NEPHROPATHY TOXIC [None]
  - RENAL TUBULAR ATROPHY [None]
